FAERS Safety Report 20702302 (Version 1)
Quarter: 2022Q2

REPORT INFORMATION
  Report Type: Spontaneous
  Country: US (occurrence: None)
  Receive Date: 20220411
  Receipt Date: 20220411
  Transmission Date: 20220720
  Serious: Yes (Hospitalization, Disabling)
  Sender: FDA-Public Use
  Company Number: None

PATIENT
  Age: 48 Year
  Sex: Female

DRUGS (8)
  1. RISPERIDONE [Suspect]
     Active Substance: RISPERIDONE
     Indication: Post-traumatic stress disorder
  2. RISPERIDONE [Suspect]
     Active Substance: RISPERIDONE
     Indication: Tardive dyskinesia
  3. RISPERIDONE [Suspect]
     Active Substance: RISPERIDONE
     Indication: Disturbance in attention
  4. RISPERIDONE [Suspect]
     Active Substance: RISPERIDONE
     Indication: Mental disorder
  5. INVEGA [Suspect]
     Active Substance: PALIPERIDONE
  6. BENADRYL [Suspect]
     Active Substance: DIPHENHYDRAMINE HYDROCHLORIDE
  7. GEODON [Suspect]
     Active Substance: ZIPRASIDONE HYDROCHLORIDE\ZIPRASIDONE MESYLATE
  8. BUPROPION [Suspect]
     Active Substance: BUPROPION

REACTIONS (13)
  - Chronic granulomatous disease [None]
  - Breast mass [None]
  - Mastitis [None]
  - Photophobia [None]
  - Grip strength decreased [None]
  - Balance disorder [None]
  - Blood pressure abnormal [None]
  - Hepatic pain [None]
  - Syncope [None]
  - Cervix disorder [None]
  - Breast necrosis [None]
  - Breast swelling [None]
  - Swelling [None]

NARRATIVE: CASE EVENT DATE: 20190101
